FAERS Safety Report 8384984-5 (Version None)
Quarter: 2012Q2

REPORT INFORMATION
  Report Type: 
  Country: None (occurrence: None)
  Receive Date: 20120524
  Receipt Date: 20120518
  Transmission Date: 20120825
  Serious: Yes (Hospitalization)
  Sender: FDA-Public Use
  Company Number: US-ALLERGAN-1207083US

PATIENT
  Age: 52 Year
  Sex: Male

DRUGS (1)
  1. BOTULINUM TOXIN TYPE A [Suspect]
     Indication: MUSCLE SPASTICITY
     Dosage: 400 UNITS, SINGLE
     Route: 030
     Dates: start: 20120306, end: 20120306

REACTIONS (3)
  - DYSPHAGIA [None]
  - GASTROINTESTINAL HAEMORRHAGE [None]
  - PNEUMONIA ASPIRATION [None]
